FAERS Safety Report 18979694 (Version 1)
Quarter: 2021Q1

REPORT INFORMATION
  Report Type: Spontaneous
  Country: US (occurrence: US)
  Receive Date: 20210305
  Receipt Date: 20210305
  Transmission Date: 20210420
  Serious: No
  Sender: FDA-Public Use
  Company Number: None

PATIENT
  Age: 53 Year
  Sex: Female
  Weight: 79.38 kg

DRUGS (3)
  1. VENLAFAXINE 75MG [Suspect]
     Active Substance: VENLAFAXINE HYDROCHLORIDE
  2. VENLAFAXINE ER 75MG [Suspect]
     Active Substance: VENLAFAXINE HYDROCHLORIDE
     Indication: DEPRESSION
     Route: 048
     Dates: start: 20210215
  3. VENLAFAXINE ER 75MG [Suspect]
     Active Substance: VENLAFAXINE HYDROCHLORIDE
     Indication: ANXIETY
     Route: 048
     Dates: start: 20210215

REACTIONS (4)
  - Symptom recurrence [None]
  - Product substitution issue [None]
  - Therapeutic response changed [None]
  - Drug effect less than expected [None]

NARRATIVE: CASE EVENT DATE: 20210215
